FAERS Safety Report 23258186 (Version 1)
Quarter: 2023Q4

REPORT INFORMATION
  Report Type: Spontaneous
  Country: US (occurrence: None)
  Receive Date: 20231201
  Receipt Date: 20231201
  Transmission Date: 20240110
  Serious: Yes (Hospitalization)
  Sender: FDA-Public Use
  Company Number: None

PATIENT
  Age: 53 Year
  Sex: Female

DRUGS (11)
  1. OPSUMIT [Suspect]
     Active Substance: MACITENTAN
     Indication: Pulmonary arterial hypertension
     Dosage: FREQUENCY : DAILY;?
     Route: 048
     Dates: start: 20220609
  2. ADEMPAS [Concomitant]
     Active Substance: RIOCIGUAT
  3. FUROSEMIDE [Concomitant]
     Active Substance: FUROSEMIDE
  4. GABAPENTIN [Concomitant]
  5. METOCLOPRAMIDE [Concomitant]
     Active Substance: METOCLOPRAMIDE
  6. OMEPRAZOLE [Concomitant]
     Active Substance: OMEPRAZOLE
  7. PAROXETINE [Concomitant]
  8. TRAZODONE [Concomitant]
     Active Substance: TRAZODONE HYDROCHLORIDE
  9. FLONASE [Concomitant]
     Active Substance: FLUTICASONE PROPIONATE
  10. IMITREX [Concomitant]
     Active Substance: SUMATRIPTAN SUCCINATE
  11. voltaren top gel [Concomitant]

REACTIONS (4)
  - Upper respiratory tract infection [None]
  - Respiratory syncytial virus infection [None]
  - Pulmonary hypertension [None]
  - Blood pressure decreased [None]

NARRATIVE: CASE EVENT DATE: 20231113
